FAERS Safety Report 6285882-3 (Version None)
Quarter: 2009Q3

REPORT INFORMATION
  Report Type: 
  Country: None (occurrence: None)
  Receive Date: 20090728
  Receipt Date: 20090721
  Transmission Date: 20100115
  Serious: Yes (Hospitalization)
  Sender: FDA-Public Use
  Company Number: US-ELI_LILLY_AND_COMPANY-US200907004703

PATIENT
  Sex: Male

DRUGS (8)
  1. HUMALOG [Suspect]
     Dosage: UNK, AS NEEDED
  2. FUROSEMIDE [Concomitant]
  3. LANTUS [Concomitant]
  4. ASPIRIN [Concomitant]
  5. LISINOPRIL [Concomitant]
  6. CARVEDILOL [Concomitant]
  7. LIPITOR [Concomitant]
  8. PLAVIX [Concomitant]

REACTIONS (12)
  - BLOOD GLUCOSE FLUCTUATION [None]
  - BLOOD GLUCOSE INCREASED [None]
  - CEREBROVASCULAR ACCIDENT [None]
  - DRUG INEFFECTIVE [None]
  - FALL [None]
  - HAND FRACTURE [None]
  - HYPOAESTHESIA [None]
  - MYOCARDIAL INFARCTION [None]
  - READING DISORDER [None]
  - TUNNEL VISION [None]
  - VISUAL ACUITY REDUCED [None]
  - WRIST FRACTURE [None]
